FAERS Safety Report 5294554-3 (Version None)
Quarter: 2007Q2

REPORT INFORMATION
  Report Type: 
  Country: None (occurrence: None)
  Receive Date: 20070409
  Receipt Date: 20070409
  Transmission Date: 20071010
  Serious: Yes (Other)
  Sender: FDA-Public Use
  Company Number: None

PATIENT
  Age: 6 Year
  Sex: Male
  Weight: 31.7518 kg

DRUGS (1)
  1. SINGULAIR [Suspect]
     Indication: ASTHMA
     Dosage: 4MG OR 5MG DAILY PO
     Route: 048

REACTIONS (9)
  - ABDOMINAL PAIN UPPER [None]
  - ANXIETY [None]
  - FEAR [None]
  - HALLUCINATION [None]
  - IRRITABILITY [None]
  - MYDRIASIS [None]
  - NIGHTMARE [None]
  - RESTLESSNESS [None]
  - VISION BLURRED [None]
